FAERS Safety Report 5146445-6 (Version None)
Quarter: 2006Q4

REPORT INFORMATION
  Report Type: 
  Country: None (occurrence: None)
  Receive Date: 20061102
  Receipt Date: 20061023
  Transmission Date: 20070319
  Serious: Yes (Hospitalization)
  Sender: FDA-Public Use
  Company Number: 2004194999US

PATIENT
  Age: 81 Year
  Sex: Female
  Weight: 93.441 kg

DRUGS (8)
  1. AROMASIN [Suspect]
     Indication: BREAST CANCER FEMALE
     Dosage: 25 MG (25 MG, FREQUENCY:  QD), ORAL
     Route: 048
     Dates: start: 20020708, end: 20031225
  2. AROMASIN [Suspect]
     Indication: BREAST CANCER FEMALE
     Dosage: 25 MG (25 MG, FREQUENCY:  QD), ORAL
     Route: 048
     Dates: start: 20040101
  3. INSULIN (INSULIN) [Concomitant]
  4. FAMOTIDINE [Concomitant]
  5. ZIAC [Concomitant]
  6. IRBESARTAN [Concomitant]
  7. HYDROCHLOROTHIAZIDE [Concomitant]
  8. AMLODIPINE BESILATE (AMLODIPINE) [Concomitant]

REACTIONS (15)
  - CEREBROVASCULAR ACCIDENT [None]
  - CHILLS [None]
  - DYSARTHRIA [None]
  - HAEMATOCRIT DECREASED [None]
  - HAEMOGLOBIN DECREASED [None]
  - INTERNATIONAL NORMALISED RATIO INCREASED [None]
  - LEUKOCYTOCLASTIC VASCULITIS [None]
  - NEPHRITIS INTERSTITIAL [None]
  - PETECHIAE [None]
  - PROTHROMBIN TIME SHORTENED [None]
  - RASH [None]
  - RENAL FAILURE [None]
  - UPPER RESPIRATORY TRACT INFECTION [None]
  - URINARY TRACT INFECTION [None]
  - WHITE BLOOD CELL COUNT INCREASED [None]
